FAERS Safety Report 13104253 (Version 9)
Quarter: 2020Q4

REPORT INFORMATION
  Report Type: Report from Study
  Country: US (occurrence: US)
  Receive Date: 20170111
  Receipt Date: 20201203
  Transmission Date: 20210113
  Serious: Yes (Hospitalization, Other)
  Sender: FDA-Public Use
  Company Number: US-AMGEN-USASP2016148517

PATIENT
  Age: 61 Year
  Sex: Female
  Weight: 70 kg

DRUGS (15)
  1. PROLIA [Suspect]
     Active Substance: DENOSUMAB
     Indication: OSTEOPOROSIS POSTMENOPAUSAL
     Dosage: 60 MG/ML, Q6MO
     Route: 058
     Dates: start: 20140701
  2. LORTAB [Concomitant]
     Active Substance: ACETAMINOPHEN\HYDROCODONE BITARTRATE
     Indication: PAIN
     Dosage: 7.5 MG (1 TABLET), AS NECESSARY EVERY 4-6 HRS
     Route: 048
     Dates: start: 20130619
  3. LATUDA [Concomitant]
     Active Substance: LURASIDONE HYDROCHLORIDE
  4. AMITRIPTYLINE [Concomitant]
     Active Substance: AMITRIPTYLINE
     Dosage: 50 MG (1 TABLET), QD (BEDTIME)
     Route: 048
     Dates: start: 20140516
  5. CALCIUM [Concomitant]
     Active Substance: CALCIUM
     Dosage: 600 MG (MINERALS 600MG), BID
     Route: 048
     Dates: start: 20140516
  6. ELAVIL [Concomitant]
     Active Substance: AMITRIPTYLINE HYDROCHLORIDE
  7. CALCIUM [Concomitant]
     Active Substance: CALCIUM
     Dosage: 400 MG (TABLET), UNK
     Route: 048
     Dates: start: 20140516
  8. PREDNISONE. [Concomitant]
     Active Substance: PREDNISONE
  9. PLAQUENIL [Concomitant]
     Active Substance: HYDROXYCHLOROQUINE SULFATE
  10. XANAX [Concomitant]
     Active Substance: ALPRAZOLAM
     Dosage: 0.5 MG, (1 TABLET) TID
     Route: 048
     Dates: start: 20160516
  11. DEPO-MEDROL [Concomitant]
     Active Substance: METHYLPREDNISOLONE ACETATE
     Dosage: 120 MG, UNK
     Route: 030
  12. CYMBALTA [Concomitant]
     Active Substance: DULOXETINE HYDROCHLORIDE
     Dosage: 60 MG (1 CAPSULE), QD
     Route: 048
     Dates: start: 20160516
  13. NORVASC [Concomitant]
     Active Substance: AMLODIPINE BESYLATE
     Dosage: 5 MG (1 TABLET), QD
     Route: 048
     Dates: start: 20160514
  14. DUKES MOUTHWASH [Concomitant]
     Dosage: UNK UNK, QID
  15. ADDERALL [Concomitant]
     Active Substance: AMPHETAMINE ASPARTATE\AMPHETAMINE SULFATE\DEXTROAMPHETAMINE SACCHARATE\DEXTROAMPHETAMINE SULFATE
     Dosage: 20 MG, (1 TABLET) QD BEFORE BREAKFAST
     Route: 048

REACTIONS (27)
  - Weight increased [Unknown]
  - Oropharyngeal pain [Unknown]
  - Bone loss [Recovering/Resolving]
  - Anxiety [Unknown]
  - Pain [Unknown]
  - Mental disorder [Unknown]
  - Aptyalism [Unknown]
  - Endodontic procedure [Unknown]
  - Cough [Unknown]
  - Tongue injury [Unknown]
  - Weight decreased [Unknown]
  - Oral pain [Unknown]
  - Loss of personal independence in daily activities [Unknown]
  - Stress [Unknown]
  - Loose tooth [Recovering/Resolving]
  - Liver function test increased [Unknown]
  - Glossodynia [Unknown]
  - Gingival erosion [Recovering/Resolving]
  - Emotional distress [Unknown]
  - Tooth loss [Recovering/Resolving]
  - Osteonecrosis of jaw [Unknown]
  - Dental caries [Recovering/Resolving]
  - Vitamin D abnormal [Unknown]
  - Tooth disorder [Recovering/Resolving]
  - Inappropriate schedule of product administration [Unknown]
  - Mobility decreased [Unknown]
  - Tooth fracture [Recovering/Resolving]

NARRATIVE: CASE EVENT DATE: 201407
